FAERS Safety Report 8423218-X (Version None)
Quarter: 2012Q2

REPORT INFORMATION
  Report Type: 
  Country: None (occurrence: None)
  Receive Date: 20120608
  Receipt Date: 20120531
  Transmission Date: 20120825
  Serious: Yes (Hospitalization)
  Sender: FDA-Public Use
  Company Number: US-JNJFOC-20120511791

PATIENT
  Sex: Female
  Weight: 49.5 kg

DRUGS (6)
  1. PRILOSEC [Concomitant]
  2. BIRTH CONTROL PILL [Concomitant]
  3. REMICADE [Suspect]
     Indication: INFLAMMATORY BOWEL DISEASE
     Route: 042
     Dates: start: 20100223
  4. REMICADE [Suspect]
     Route: 042
     Dates: start: 20120511
  5. IRON [Concomitant]
  6. VITAMIN B-12 [Concomitant]

REACTIONS (1)
  - CROHN'S DISEASE [None]
